FAERS Safety Report 24917057 (Version 1)
Quarter: 2025Q1

REPORT INFORMATION
  Report Type: Spontaneous
  Country: CA (occurrence: CA)
  Receive Date: 20250203
  Receipt Date: 20250203
  Transmission Date: 20250409
  Serious: Yes (Hospitalization, Other)
  Sender: NANJING KING-FRIEND BIOCHEMICAL PHARMACEUTICAL
  Company Number: CA-NKFPHARMA-2025MPLIT00037

PATIENT
  Age: 56 Year
  Sex: Female
  Weight: 83 kg

DRUGS (6)
  1. ENOXAPARIN SODIUM [Suspect]
     Active Substance: ENOXAPARIN SODIUM
     Indication: Anticoagulant therapy
     Route: 065
  2. HEPARIN [Suspect]
     Active Substance: HEPARIN SODIUM
     Indication: Anticoagulant therapy
     Route: 065
  3. HEPARIN [Suspect]
     Active Substance: HEPARIN SODIUM
     Route: 065
  4. BIVALIRUDIN [Concomitant]
     Active Substance: BIVALIRUDIN
     Indication: Anticoagulant therapy
     Route: 065
  5. BIVALIRUDIN [Concomitant]
     Active Substance: BIVALIRUDIN
     Route: 065
  6. BIVALIRUDIN [Concomitant]
     Active Substance: BIVALIRUDIN
     Route: 065

REACTIONS (1)
  - Autoimmune heparin-induced thrombocytopenia [Recovered/Resolved]
